FAERS Safety Report 8971221 (Version 1)
Quarter: 2012Q4

REPORT INFORMATION
  Report Type: 
  Country: US (occurrence: US)
  Receive Date: 20121217
  Receipt Date: 20121217
  Transmission Date: 20130627
  Serious: Yes (Hospitalization)
  Sender: FDA-Public Use
  Company Number: US-GLAXOSMITHKLINE-A1005582A

PATIENT
  Age: 53 Year
  Sex: Male

DRUGS (1)
  1. VOTRIENT [Suspect]
     Indication: METASTASES TO LUNG
     Route: 048

REACTIONS (1)
  - Hospitalisation [Unknown]
